FAERS Safety Report 5054730-1 (Version None)
Quarter: 2006Q2

REPORT INFORMATION
  Report Type: 
  Country: None (occurrence: None)
  Receive Date: 20060614
  Receipt Date: 20051207
  Transmission Date: 20061013
  Serious: Yes (Other)
  Sender: FDA-Public Use
  Company Number: US200511003343

PATIENT
  Age: 65 Year
  Sex: Male

DRUGS (6)
  1. CIALIS [Suspect]
     Indication: ERECTILE DYSFUNCTION
     Dosage: 20 MG
     Dates: start: 20040301
  2. LIPITOR [Concomitant]
  3. DIOVAN HCT [Concomitant]
  4. DIOVAN [Concomitant]
  5. ASPIRIN [Concomitant]
  6. VITAMIN E [Concomitant]

REACTIONS (2)
  - FLUSHING [None]
  - RETINAL VEIN OCCLUSION [None]
